FAERS Safety Report 10261509 (Version 2)
Quarter: 2014Q2

REPORT INFORMATION
  Report Type: Spontaneous
  Country: US (occurrence: US)
  Receive Date: 20140626
  Receipt Date: 20140626
  Transmission Date: 20141212
  Serious: No
  Sender: FDA-Public Use
  Company Number: US-MYLANLABS-2013S1017210

PATIENT
  Age: 66 Year
  Sex: Male
  Weight: 120.2 kg

DRUGS (2)
  1. PERFOROMIST (FORMOTEROL FUMARATE) INHALATION SOLUTION [Suspect]
     Indication: CHRONIC OBSTRUCTIVE PULMONARY DISEASE
     Route: 055
     Dates: start: 2012
  2. BUDESONIDE [Suspect]
     Indication: CHRONIC OBSTRUCTIVE PULMONARY DISEASE
     Route: 055

REACTIONS (2)
  - Diarrhoea [Recovered/Resolved]
  - Drug administration error [Recovered/Resolved]
